FAERS Safety Report 7422663-9 (Version None)
Quarter: 2011Q2

REPORT INFORMATION
  Report Type: 
  Country: None (occurrence: None)
  Receive Date: 20110414
  Receipt Date: 20110414
  Transmission Date: 20111010
  Serious: Yes (Life-Threatening, Hospitalization)
  Sender: FDA-Public Use
  Company Number: None

PATIENT
  Age: 71 Year
  Sex: Male
  Weight: 52 kg

DRUGS (3)
  1. METOPROLOL SUCCINATE [Suspect]
     Indication: CARDIAC FAILURE CONGESTIVE
     Dosage: 50 MG BID PO
     Route: 048
     Dates: start: 19990727, end: 20110330
  2. METOPROLOL SUCCINATE [Suspect]
     Indication: HYPERTENSION
     Dosage: 50 MG BID PO
     Route: 048
     Dates: start: 19990727, end: 20110330
  3. CARVEDILOL [Suspect]
     Dosage: 6.25 MG EVERY DAY PO
     Route: 048
     Dates: start: 20110330, end: 20110405

REACTIONS (3)
  - ATRIOVENTRICULAR BLOCK COMPLETE [None]
  - ACUTE RESPIRATORY FAILURE [None]
  - ATRIOVENTRICULAR BLOCK SECOND DEGREE [None]
